FAERS Safety Report 4598228-3 (Version None)
Quarter: 2005Q1

REPORT INFORMATION
  Report Type: 
  Country: None (occurrence: None)
  Receive Date: 20050301
  Receipt Date: 20050301
  Transmission Date: 20050727
  Serious: Yes (Other)
  Sender: FDA-Public Use
  Company Number: None

PATIENT
  Sex: Female
  Weight: 88.4514 kg

DRUGS (1)
  1. NEURONTIN [Suspect]

REACTIONS (3)
  - CONDITION AGGRAVATED [None]
  - DYSAESTHESIA [None]
  - PHARMACEUTICAL PRODUCT COMPLAINT [None]
